FAERS Safety Report 7821611-7 (Version None)
Quarter: 2011Q4

REPORT INFORMATION
  Report Type: 
  Country: None (occurrence: None)
  Receive Date: 20111018
  Receipt Date: 20110816
  Transmission Date: 20120403
  Serious: No
  Sender: FDA-Public Use
  Company Number: US-ASTRAZENECA-2011SE15944

PATIENT
  Age: 85 Year
  Sex: Female

DRUGS (3)
  1. SYMBICORT [Suspect]
     Dosage: 160/4.5 MCG 2 PUFFS BID
     Route: 055
  2. MUCINEX [Concomitant]
  3. PREDNISONE [Concomitant]

REACTIONS (9)
  - PAIN [None]
  - MUSCULOSKELETAL DISCOMFORT [None]
  - POLYMYALGIA RHEUMATICA [None]
  - HEARING IMPAIRED [None]
  - MALAISE [None]
  - INTERVERTEBRAL DISC PROTRUSION [None]
  - LUNG DISORDER [None]
  - GAIT DISTURBANCE [None]
  - FIBROSIS [None]
